FAERS Safety Report 8817692 (Version 5)
Quarter: 2013Q2

REPORT INFORMATION
  Report Type: Spontaneous
  Country: FI (occurrence: FI)
  Receive Date: 20121001
  Receipt Date: 20130401
  Transmission Date: 20140414
  Serious: Yes (Other)
  Sender: FDA-Public Use
  Company Number: PHHY2012FI084830

PATIENT
  Age: 58 Year
  Sex: Female

DRUGS (5)
  1. SANDOSTATIN LAR [Suspect]
     Indication: NEUROENDOCRINE TUMOUR
     Dosage: 30 MG, UNK
  2. SANDOSTATIN LAR [Suspect]
     Dosage: 30 MG, UNK
  3. PANADOL [Concomitant]
     Indication: MYALGIA
  4. TRAMAL [Concomitant]
     Indication: MYALGIA
  5. CORTISONE [Concomitant]

REACTIONS (20)
  - Blister infected [Unknown]
  - Pharyngeal oedema [Unknown]
  - Hypersensitivity [Unknown]
  - Urticaria [Not Recovered/Not Resolved]
  - Abscess [Unknown]
  - Purulent discharge [Unknown]
  - Arrhythmia [Unknown]
  - Injection site mass [Unknown]
  - Injection site inflammation [Unknown]
  - Injection site haemorrhage [Recovered/Resolved]
  - Trichorrhexis [Not Recovered/Not Resolved]
  - Back pain [Recovering/Resolving]
  - Limb discomfort [Unknown]
  - Arthralgia [Not Recovered/Not Resolved]
  - Myalgia [Not Recovered/Not Resolved]
  - Malaise [Unknown]
  - Dysphonia [Unknown]
  - Chest pain [Not Recovered/Not Resolved]
  - Diarrhoea [Recovered/Resolved]
  - Headache [Not Recovered/Not Resolved]
